FAERS Safety Report 22323044 (Version 2)
Quarter: 2023Q2

REPORT INFORMATION
  Report Type: Spontaneous
  Country: US (occurrence: US)
  Receive Date: 20230516
  Receipt Date: 20230525
  Transmission Date: 20230722
  Serious: Yes (Other)
  Sender: FDA-Public Use
  Company Number: US-ABBVIE-4767554

PATIENT
  Sex: Male

DRUGS (1)
  1. MAVYRET [Suspect]
     Active Substance: GLECAPREVIR\PIBRENTASVIR
     Indication: Chronic hepatitis C
     Route: 048
     Dates: start: 201907

REACTIONS (13)
  - Hepatic cancer [Unknown]
  - Feeling abnormal [Unknown]
  - Hepatic failure [Unknown]
  - Weight decreased [Unknown]
  - Drug ineffective [Unknown]
  - Skin discolouration [Unknown]
  - Scar [Unknown]
  - Skin disorder [Unknown]
  - Bedridden [Unknown]
  - Asthenia [Unknown]
  - Rash [Unknown]
  - Life expectancy shortened [Unknown]
  - Pain [Unknown]
